FAERS Safety Report 5717824-0 (Version None)
Quarter: 2008Q2

REPORT INFORMATION
  Report Type: 
  Country: None (occurrence: None)
  Receive Date: 20080425
  Receipt Date: 20080415
  Transmission Date: 20081010
  Serious: Yes (Other)
  Sender: FDA-Public Use
  Company Number: US-JNJFOC-20080404560

PATIENT
  Sex: Male

DRUGS (1)
  1. TYLENOL COLD MULTI-SYMPTOM DAYTIME CITRUS BURST [Suspect]
     Indication: DRUG USE FOR UNKNOWN INDICATION
     Dosage: ^1 AND 1/2 BOTTLES^
     Route: 048

REACTIONS (3)
  - DIZZINESS [None]
  - INTENTIONAL OVERDOSE [None]
  - VOMITING [None]
